FAERS Safety Report 14675876 (Version 1)
Quarter: 2018Q1

REPORT INFORMATION
  Report Type: Spontaneous
  Country: NL (occurrence: NL)
  Receive Date: 20180323
  Receipt Date: 20180323
  Transmission Date: 20180509
  Serious: Yes (Other)
  Sender: FDA-Public Use
  Company Number: NL-SA-2018SA081400

PATIENT
  Age: 78 Year
  Sex: Female
  Weight: 74 kg

DRUGS (10)
  1. LUMIGAN [Concomitant]
     Active Substance: BIMATOPROST
  2. THYRAX [Concomitant]
     Active Substance: LEVOTHYROXINE
     Route: 065
  3. OLMETEC [Concomitant]
     Active Substance: OLMESARTAN MEDOXOMIL
  4. NEXIUM [Concomitant]
     Active Substance: ESOMEPRAZOLE MAGNESIUM
  5. TRUSOPT [Concomitant]
     Active Substance: DORZOLAMIDE HYDROCHLORIDE
  6. DOMPERIDONE [Concomitant]
     Active Substance: DOMPERIDONE
  7. CLOPIDOGREL BISULFATE. [Suspect]
     Active Substance: CLOPIDOGREL BISULFATE
     Indication: ANTICOAGULANT THERAPY
     Route: 048
     Dates: start: 20180112, end: 20180117
  8. CYRESS [Concomitant]
     Active Substance: BARNIDIPINE HYDROCHLORIDE
  9. MESTINON [Concomitant]
     Active Substance: PYRIDOSTIGMINE BROMIDE
  10. ALVESCO [Concomitant]
     Active Substance: CICLESONIDE

REACTIONS (5)
  - Vision blurred [Recovering/Resolving]
  - Hemiplegia [Recovering/Resolving]
  - Hypertension [Recovering/Resolving]
  - Fatigue [Recovering/Resolving]
  - Paraesthesia [Recovering/Resolving]

NARRATIVE: CASE EVENT DATE: 20180114
